FAERS Safety Report 6604792-2 (Version None)
Quarter: 2010Q1

REPORT INFORMATION
  Report Type: 
  Country: None (occurrence: None)
  Receive Date: 20100226
  Receipt Date: 20100127
  Transmission Date: 20100710
  Serious: Yes (Other)
  Sender: FDA-Public Use
  Company Number: US-BRISTOL-MYERS SQUIBB COMPANY-14956890

PATIENT
  Age: 51 Year
  Sex: Female

DRUGS (5)
  1. ONGLYZA [Suspect]
  2. SIMVASTATIN [Suspect]
  3. AZOR [Concomitant]
  4. TENORMIN [Concomitant]
  5. PROAIR HFA [Concomitant]

REACTIONS (2)
  - PRURITUS [None]
  - SWELLING FACE [None]
